FAERS Safety Report 10606370 (Version 1)
Quarter: 2014Q4

REPORT INFORMATION
  Report Type: Report from Study
  Country: US (occurrence: US)
  Receive Date: 20141125
  Receipt Date: 20141125
  Transmission Date: 20150529
  Serious: Yes (Death)
  Sender: FDA-Public Use
  Company Number: PHEH2014US023490

PATIENT
  Sex: Male

DRUGS (2)
  1. GLEEVEC [Suspect]
     Active Substance: IMATINIB MESYLATE
     Indication: OFF LABEL USE
  2. GLEEVEC [Suspect]
     Active Substance: IMATINIB MESYLATE
     Indication: NON-HODGKIN^S LYMPHOMA
     Dosage: 600 MG, QD
     Route: 048
     Dates: start: 20130419

REACTIONS (1)
  - Non-Hodgkin^s lymphoma [Fatal]
